FAERS Safety Report 5619680-8 (Version None)
Quarter: 2008Q1

REPORT INFORMATION
  Report Type: 
  Country: None (occurrence: None)
  Receive Date: 20080206
  Receipt Date: 20080131
  Transmission Date: 20080703
  Serious: Yes (Death)
  Sender: FDA-Public Use
  Company Number: 163-21880-08010571

PATIENT
  Age: 77 Year
  Sex: Male

DRUGS (3)
  1. REVLIMID [Suspect]
     Indication: MYELODYSPLASTIC SYNDROME
     Dosage: 10 MG, QD X 21 DAYS PER MONTH, ORAL; 5MG, 1 IN 1 D, ORAL; 2.5 MG, 1 IN 2 D, ORAL
     Route: 048
     Dates: start: 20070901, end: 20070901
  2. REVLIMID [Suspect]
     Indication: MYELODYSPLASTIC SYNDROME
     Dosage: 10 MG, QD X 21 DAYS PER MONTH, ORAL; 5MG, 1 IN 1 D, ORAL; 2.5 MG, 1 IN 2 D, ORAL
     Route: 048
     Dates: start: 20071001, end: 20071101
  3. REVLIMID [Suspect]
     Indication: MYELODYSPLASTIC SYNDROME
     Dosage: 10 MG, QD X 21 DAYS PER MONTH, ORAL; 5MG, 1 IN 1 D, ORAL; 2.5 MG, 1 IN 2 D, ORAL
     Route: 048
     Dates: start: 20070701

REACTIONS (3)
  - ACUTE LEUKAEMIA [None]
  - DISEASE PROGRESSION [None]
  - MYELODYSPLASTIC SYNDROME [None]
